FAERS Safety Report 7003412 (Version 4)
Quarter: 2012Q4

REPORT INFORMATION
  Report Type: 
  Country: US (occurrence: US)
  Receive Date: 20050725
  Receipt Date: 20121016
  Transmission Date: 20130627
  Serious: Yes (Death, Other)
  Sender: FDA-Public Use
  Company Number: US-PFIZER INC-2005104259

PATIENT
  Age: 61 Year
  Sex: Female
  Weight: 47 kg

DRUGS (3)
  1. PROVERA [Suspect]
     Indication: HORMONE REPLACEMENT THERAPY
     Dosage: 2.5 mg, UNK
     Route: 048
     Dates: start: 1998, end: 2000
  2. PREMARIN [Suspect]
     Indication: HORMONE REPLACEMENT THERAPY
     Dosage: 0.625 mg, UNK
     Route: 048
     Dates: start: 1987, end: 2002
  3. MEDROXYPROGESTERONE [Suspect]
     Indication: HORMONE REPLACEMENT THERAPY
     Dosage: 2.5 mg, UNK
     Dates: start: 1987, end: 2002

REACTIONS (1)
  - Breast cancer recurrent [Fatal]
